FAERS Safety Report 18051488 (Version 2)
Quarter: 2020Q4

REPORT INFORMATION
  Report Type: Report from Study
  Country: None (occurrence: US)
  Receive Date: 20200722
  Receipt Date: 20201016
  Transmission Date: 20210113
  Serious: Yes (Hospitalization, Other)
  Sender: FDA-Public Use
  Company Number: US-ABBVIE-20K-163-3484291-00

PATIENT
  Age: 55 Year
  Sex: Male
  Weight: 77.18 kg

DRUGS (11)
  1. SINEMET [Concomitant]
     Active Substance: CARBIDOPA\LEVODOPA
     Indication: PRODUCT USED FOR UNKNOWN INDICATION
     Dates: start: 201905
  2. AMANTADINE. [Concomitant]
     Active Substance: AMANTADINE HYDROCHLORIDE
     Indication: PRODUCT USED FOR UNKNOWN INDICATION
  3. CLONAZEPAM. [Concomitant]
     Active Substance: CLONAZEPAM
     Indication: PRODUCT USED FOR UNKNOWN INDICATION
     Dates: start: 20200604
  4. ROTIGOTINE [Concomitant]
     Active Substance: ROTIGOTINE
     Indication: PRODUCT USED FOR UNKNOWN INDICATION
  5. DEPAKOTE ER [Suspect]
     Active Substance: DIVALPROEX SODIUM
     Indication: FOCAL DYSCOGNITIVE SEIZURES
     Dosage: ONCE IN A DAY AT BEDTIME
     Route: 048
  6. GOCOVRI [Suspect]
     Active Substance: AMANTADINE
     Route: 048
  7. FUROSEMIDE. [Concomitant]
     Active Substance: FUROSEMIDE
     Indication: PRODUCT USED FOR UNKNOWN INDICATION
  8. GOCOVRI [Suspect]
     Active Substance: AMANTADINE
     Indication: DYSKINESIA
     Dosage: ONCE IN A DAY AT NIGHT
     Route: 048
     Dates: start: 20181129
  9. DEPAKOTE ER [Suspect]
     Active Substance: DIVALPROEX SODIUM
     Indication: PARTIAL SEIZURES
     Dosage: ONCE IN A DAY AT NIGHT
     Route: 048
  10. GOCOVRI [Suspect]
     Active Substance: AMANTADINE
     Dosage: ONCE IN A DAY AT NIGHT
     Route: 048
  11. AMOXICILLIN. [Concomitant]
     Active Substance: AMOXICILLIN
     Indication: PRODUCT USED FOR UNKNOWN INDICATION

REACTIONS (17)
  - Slow response to stimuli [Unknown]
  - Tremor [Unknown]
  - Gait disturbance [Unknown]
  - Movement disorder [Unknown]
  - Parkinson^s disease [Not Recovered/Not Resolved]
  - Decreased appetite [Unknown]
  - Cogwheel rigidity [Unknown]
  - Mobility decreased [Unknown]
  - Dyskinesia [Unknown]
  - Acute kidney injury [Recovering/Resolving]
  - Partial seizures [Recovered/Resolved]
  - Dyspnoea [Unknown]
  - Confusional state [Unknown]
  - Parkinson^s disease [Recovered/Resolved]
  - Focal dyscognitive seizures [Recovered/Resolved]
  - Seizure [Not Recovered/Not Resolved]
  - Rapid eye movement sleep behaviour disorder [Unknown]

NARRATIVE: CASE EVENT DATE: 201905
